FAERS Safety Report 12619923 (Version 2)
Quarter: 2016Q4

REPORT INFORMATION
  Report Type: Report from Study
  Country: US (occurrence: US)
  Receive Date: 20160803
  Receipt Date: 20161222
  Transmission Date: 20170207
  Serious: Yes (Other)
  Sender: FDA-Public Use
  Company Number: US-SAOL THERAPEUTICS-2016SAO00296

PATIENT
  Sex: Male

DRUGS (8)
  1. NUCYNTA [Concomitant]
     Active Substance: TAPENTADOL HYDROCHLORIDE
  2. BACLOFEN. [Suspect]
     Active Substance: BACLOFEN
     Indication: PAIN
     Dosage: 1.5 ?G, \DAY
     Route: 037
     Dates: start: 20150603
  3. BACLOFEN. [Suspect]
     Active Substance: BACLOFEN
     Indication: POST LAMINECTOMY SYNDROME
  4. CLONIDINE. [Suspect]
     Active Substance: CLONIDINE
     Dosage: 0.75 ?G, \DAY
     Route: 037
     Dates: start: 20150603
  5. VALIUM [Concomitant]
     Active Substance: DIAZEPAM
  6. PREDNISONE. [Concomitant]
     Active Substance: PREDNISONE
  7. BUPIVACAINE. [Suspect]
     Active Substance: BUPIVACAINE
     Dosage: 0.0299 MG, \DAY
     Route: 037
     Dates: start: 20150603
  8. NORTRIPTYLINE [Concomitant]
     Active Substance: NORTRIPTYLINE

REACTIONS (7)
  - Device leakage [Not Recovered/Not Resolved]
  - Post lumbar puncture syndrome [Recovered/Resolved]
  - Implant site extravasation [Recovered/Resolved]
  - Medical device site discharge [Unknown]
  - Implant site pain [Unknown]
  - Device infusion issue [Not Recovered/Not Resolved]
  - Device damage [Not Recovered/Not Resolved]
